FAERS Safety Report 6775260-2 (Version None)
Quarter: 2010Q2

REPORT INFORMATION
  Report Type: 
  Country: None (occurrence: None)
  Receive Date: 20100617
  Receipt Date: 20100608
  Transmission Date: 20101027
  Serious: Yes (Death)
  Sender: FDA-Public Use
  Company Number: GXKR2010US06313

PATIENT
  Age: 27 Year
  Sex: Female

DRUGS (9)
  1. AZITHROMYCIN (NGX) [Suspect]
     Indication: UPPER RESPIRATORY TRACT INFECTION
     Route: 065
  2. TIZANIDINE (NGX) [Suspect]
     Route: 065
  3. BUPROPION HCL [Concomitant]
  4. TRAZODONE HYDROCHLORIDE [Concomitant]
  5. ZOLPIDEM [Concomitant]
  6. FEXOFENADINE [Concomitant]
  7. TRAMADOL [Concomitant]
  8. IBUPROFEN [Concomitant]
  9. SUMATRIPTAN SUCCINATE [Concomitant]

REACTIONS (6)
  - BRAIN INJURY [None]
  - CARDIAC ARREST [None]
  - DRUG INTERACTION [None]
  - LOSS OF CONSCIOUSNESS [None]
  - TORSADE DE POINTES [None]
  - VENTRICULAR FIBRILLATION [None]
